FAERS Safety Report 4803985-4 (Version None)
Quarter: 2005Q3

REPORT INFORMATION
  Report Type: 
  Country: None (occurrence: None)
  Receive Date: 20050920
  Receipt Date: 20050707
  Transmission Date: 20060218
  Serious: No
  Sender: FDA-Public Use
  Company Number: US-YAMANOUCHI-YPA20050366

PATIENT
  Age: 83 Year
  Sex: Female
  Weight: 54.4316 kg

DRUGS (6)
  1. VESICARE [Suspect]
     Indication: HYPERTONIC BLADDER
     Dosage: 5 MG BID PO
     Route: 048
     Dates: start: 20050601, end: 20050701
  2. NEXIUM [Concomitant]
  3. LORAZEPAM [Concomitant]
  4. TOPROL-XL [Concomitant]
  5. EXTRA STRENGTH TYLENOL [Concomitant]
  6. GLUCOSAMINE [Concomitant]

REACTIONS (1)
  - CONTUSION [None]
